FAERS Safety Report 21729957 (Version 1)
Quarter: 2022Q4

REPORT INFORMATION
  Report Type: Spontaneous
  Country: NL (occurrence: None)
  Receive Date: 20221214
  Receipt Date: 20221214
  Transmission Date: 20230112
  Serious: Yes (Death)
  Sender: FDA-Public Use
  Company Number: 2022A403479

PATIENT
  Sex: Male
  Weight: 82 kg

DRUGS (4)
  1. EVUSHELD [Suspect]
     Active Substance: CILGAVIMAB\TIXAGEVIMAB
     Indication: COVID-19 treatment
     Dosage: 1X DON^T KNOW HOW MUCH1.0DF ONCE/SINGLE ADMINISTRATION
     Route: 041
     Dates: start: 20220820
  2. SULFAMETHOXAZOLE\TRIMETHOPRIM [Concomitant]
     Active Substance: SULFAMETHOXAZOLE\TRIMETHOPRIM
     Indication: Product used for unknown indication
     Dosage: 1 1X PD 480MG BACTRIM
     Route: 048
     Dates: start: 20220101
  3. CYCLOSPORINE [Concomitant]
     Active Substance: CYCLOSPORINE
     Indication: Leukaemia
     Dosage: 125MG PER DAY
     Route: 048
     Dates: start: 20220101
  4. VALACYCLOVIR HYDROCHLORIDE [Concomitant]
     Active Substance: VALACYCLOVIR HYDROCHLORIDE
     Indication: Prophylaxis
     Dosage: 500 MG
     Route: 048
     Dates: start: 20220101

REACTIONS (1)
  - Cerebral infarction [Fatal]
